FAERS Safety Report 10792995 (Version 1)
Quarter: 2015Q1

REPORT INFORMATION
  Report Type: Spontaneous
  Country: US (occurrence: None)
  Receive Date: 20150212
  Receipt Date: 20150212
  Transmission Date: 20150721
  Serious: Yes (Death, Hospitalization)
  Sender: FDA-Public Use
  Company Number: None

PATIENT
  Age: 52 Year
  Sex: Female
  Weight: 55.72 kg

DRUGS (3)
  1. TAXOL [Suspect]
     Active Substance: PACLITAXEL
  2. CARBOPLATIN. [Suspect]
     Active Substance: CARBOPLATIN
     Dates: end: 20150128
  3. BEVACIZUMAB [Suspect]
     Active Substance: BEVACIZUMAB
     Dates: end: 20150128

REACTIONS (10)
  - Platelet count decreased [None]
  - Infection [None]
  - Pneumonia [None]
  - Malnutrition [None]
  - Pyrexia [None]
  - Dyspnoea [None]
  - Blood lactic acid increased [None]
  - Empyema [None]
  - White blood cell count decreased [None]
  - Oliguria [None]

NARRATIVE: CASE EVENT DATE: 20150205
